FAERS Safety Report 13926450 (Version 1)
Quarter: 2017Q3

REPORT INFORMATION
  Report Type: Spontaneous
  Country: DE (occurrence: DE)
  Receive Date: 20170831
  Receipt Date: 20170831
  Transmission Date: 20171127
  Serious: Yes (Life-Threatening)
  Sender: FDA-Public Use
  Company Number: DE-FRESENIUS KABI-FK201707209

PATIENT
  Sex: Male

DRUGS (3)
  1. CEFUROXIME (MANUFACTURER UNKNOWN) [Suspect]
     Active Substance: CEFUROXIME
     Indication: INFECTION PROPHYLAXIS
     Route: 042
  2. MSI [Concomitant]
     Active Substance: MORPHINE SULFATE
     Indication: IMPLANTABLE DEFIBRILLATOR REPLACEMENT
     Route: 042
  3. DORMICUM [Concomitant]
     Indication: IMPLANTABLE DEFIBRILLATOR REPLACEMENT
     Route: 042

REACTIONS (4)
  - Arrhythmia [Recovered/Resolved]
  - Blood pressure decreased [Recovered/Resolved]
  - Anaphylactic shock [Recovered/Resolved]
  - Hyperhidrosis [Recovered/Resolved]
